FAERS Safety Report 7378657-5 (Version None)
Quarter: 2011Q1

REPORT INFORMATION
  Report Type: 
  Country: None (occurrence: None)
  Receive Date: 20110323
  Receipt Date: 20110323
  Transmission Date: 20110831
  Serious: Yes (Life-Threatening, Hospitalization, Disabling, Other)
  Sender: FDA-Public Use
  Company Number: None

PATIENT
  Age: 12 Year
  Sex: Female
  Weight: 58.9676 kg

DRUGS (1)
  1. ZOLOFT [Suspect]
     Indication: ANXIETY
     Dosage: 50 MG ONCE DAILY PO
     Route: 048
     Dates: start: 20101015, end: 20110322

REACTIONS (15)
  - FOOD HOARDING [None]
  - AMENORRHOEA [None]
  - IMPULSIVE BEHAVIOUR [None]
  - HALLUCINATION [None]
  - DEPRESSED MOOD [None]
  - OVERDOSE [None]
  - FEELING ABNORMAL [None]
  - VICTIM OF SEXUAL ABUSE [None]
  - SUICIDAL IDEATION [None]
  - HOMICIDAL IDEATION [None]
  - CRYING [None]
  - ABDOMINAL PAIN UPPER [None]
  - ANXIETY [None]
  - SHOPLIFTING [None]
  - DIZZINESS [None]
